FAERS Safety Report 9988789 (Version 1)
Quarter: 2014Q1

REPORT INFORMATION
  Report Type: Spontaneous
  Country: US (occurrence: US)
  Receive Date: 20140310
  Receipt Date: 20140310
  Transmission Date: 20141002
  Serious: No
  Sender: FDA-Public Use
  Company Number: US-009507513-1403USA002250

PATIENT
  Age: 21 Year
  Sex: Female
  Weight: 107.48 kg

DRUGS (3)
  1. NUVARING [Suspect]
     Indication: CONTRACEPTION
     Dosage: 3 WEEKS IN, 1 WEEK OUT, 1 RING
     Route: 067
     Dates: start: 20131212
  2. NUVARING [Suspect]
     Indication: PROPHYLAXIS
  3. GILENYA [Concomitant]

REACTIONS (1)
  - Menstruation delayed [Unknown]
